FAERS Safety Report 26181432 (Version 1)
Quarter: 2025Q4

REPORT INFORMATION
  Report Type: Spontaneous
  Country: EU (occurrence: EU)
  Receive Date: 20251221
  Receipt Date: 20251221
  Transmission Date: 20260117
  Serious: Yes (Hospitalization)
  Sender: VERTEX
  Company Number: None

PATIENT
  Age: 27 Year
  Sex: Female
  Weight: 39 kg

DRUGS (2)
  1. ELEXACAFTOR\IVACAFTOR\TEZACAFTOR [Suspect]
     Active Substance: ELEXACAFTOR\IVACAFTOR\TEZACAFTOR
     Indication: Cystic fibrosis
     Dosage: TWO TABS ONCE A DAY
     Route: 061
     Dates: start: 202107, end: 202202
  2. POSACONAZOLE [Concomitant]
     Active Substance: POSACONAZOLE

REACTIONS (1)
  - Terminal ileitis [Recovered/Resolved]

NARRATIVE: CASE EVENT DATE: 20210701
